FAERS Safety Report 21957868 (Version 4)
Quarter: 2023Q2

REPORT INFORMATION
  Report Type: Spontaneous
  Country: CA (occurrence: CA)
  Receive Date: 20230206
  Receipt Date: 20230404
  Transmission Date: 20230721
  Serious: Yes (Hospitalization, Other)
  Sender: FDA-Public Use
  Company Number: CA-PFIZER INC-202200122500

PATIENT
  Age: 79 Year
  Sex: Female

DRUGS (3)
  1. RUXIENCE [Suspect]
     Active Substance: RITUXIMAB-PVVR
     Indication: Sjogren^s syndrome
     Dosage: 1 DF, 1G DAY 1 AND 15 THEN Q 6 MONTHS NOT YET STARTED
     Route: 042
     Dates: start: 20220202, end: 20220216
  2. RUXIENCE [Suspect]
     Active Substance: RITUXIMAB-PVVR
     Indication: Rheumatoid arthritis
     Dosage: 1G DAY 1 AND 15 THEN Q 6 MONTHS
     Route: 042
     Dates: start: 20220908, end: 20220922
  3. RUXIENCE [Suspect]
     Active Substance: RITUXIMAB-PVVR
     Dosage: 1G DAY 1 AND 15 THEN Q 6 MONTHS
     Route: 042
     Dates: start: 20220922

REACTIONS (6)
  - COVID-19 [Recovered/Resolved]
  - Joint injury [Recovered/Resolved]
  - Off label use [Unknown]
  - Gait disturbance [Not Recovered/Not Resolved]
  - Hypersomnia [Not Recovered/Not Resolved]
  - Arthralgia [Not Recovered/Not Resolved]

NARRATIVE: CASE EVENT DATE: 20220202
